FAERS Safety Report 8464853-2 (Version None)
Quarter: 2012Q2

REPORT INFORMATION
  Report Type: 
  Country: None (occurrence: None)
  Receive Date: 20120618
  Receipt Date: 20120531
  Transmission Date: 20120825
  Serious: Yes (Life-Threatening)
  Sender: FDA-Public Use
  Company Number: FK201201595

PATIENT
  Age: 68 Year
  Sex: Female
  Weight: 60 kg

DRUGS (1)
  1. OXALIPLATIN [Suspect]
     Indication: NEOPLASM MALIGNANT
     Dosage: 5 MG/ML
     Dates: start: 20120528, end: 20120528

REACTIONS (5)
  - LOSS OF CONSCIOUSNESS [None]
  - HYPERTENSION [None]
  - DYSPNOEA [None]
  - BRONCHOSPASM [None]
  - APPLICATION SITE PAIN [None]
